FAERS Safety Report 9275696 (Version 1)
Quarter: 2013Q2

REPORT INFORMATION
  Report Type: Report from Study
  Country: US (occurrence: US)
  Receive Date: 20130507
  Receipt Date: 20130507
  Transmission Date: 20140414
  Serious: Yes (Death)
  Sender: FDA-Public Use
  Company Number: US-SANOFI-AVENTIS-2013SA046367

PATIENT
  Sex: 0

DRUGS (3)
  1. DOCETAXEL [Suspect]
     Indication: SQUAMOUS CELL CARCINOMA OF HEAD AND NECK
     Dosage: DOCETAXEL GIVEN AS A 60-MINUTE INFUSION ON DAYS 1, 8, 15 OF A 28 DAY CYCLE
     Route: 065
  2. GEFITINIB [Suspect]
     Indication: SQUAMOUS CELL CARCINOMA OF HEAD AND NECK
     Dosage: ON DAY 1 AND CONTINUING UPTO 28 DAYS OF EACH CYCLE
     Route: 048
  3. DEXAMETHASONE [Concomitant]
     Indication: PREMEDICATION
     Dosage: 4 MG PO 12 H BEFORE DOCETAXEL,4MG IV OR PO 30-60 MIN BEFORE DOCETAXEL,4 MG PO 12 H AFTER DOCETAXEL

REACTIONS (1)
  - Hypotension [Fatal]
